FAERS Safety Report 21644314 (Version 2)
Quarter: 2022Q4

REPORT INFORMATION
  Report Type: Spontaneous
  Country: CA (occurrence: None)
  Receive Date: 20221125
  Receipt Date: 20221129
  Transmission Date: 20230113
  Serious: Yes (Hospitalization, Other)
  Sender: FDA-Public Use
  Company Number: 2022A228608

PATIENT
  Age: 30 Year
  Sex: Male

DRUGS (12)
  1. BUDESONIDE\FORMOTEROL [Suspect]
     Active Substance: BUDESONIDE\FORMOTEROL
     Indication: Asthma
     Route: 055
  2. BUDESONIDE\FORMOTEROL [Suspect]
     Active Substance: BUDESONIDE\FORMOTEROL
     Indication: Asthma
     Dosage: 2.0DF UNKNOWN
     Route: 065
  3. MEPOLIZUMAB [Suspect]
     Active Substance: MEPOLIZUMAB
     Indication: Asthma
     Dosage: 100.0MG UNKNOWN
     Route: 042
  4. ALBUTEROL [Suspect]
     Active Substance: ALBUTEROL
     Indication: Product used for unknown indication
     Route: 065
  5. ALBUTEROL [Suspect]
     Active Substance: ALBUTEROL
     Indication: Asthma
     Route: 065
  6. ALBUTEROL [Suspect]
     Active Substance: ALBUTEROL
     Indication: Product used for unknown indication
     Route: 048
  7. ALBUTEROL [Suspect]
     Active Substance: ALBUTEROL
     Indication: Asthma
     Route: 048
  8. SERTRALINE HYDROCHLORIDE [Suspect]
     Active Substance: SERTRALINE HYDROCHLORIDE
     Indication: Asthma
     Dosage: UNKNOWN
     Route: 065
  9. SPIRIVA [Suspect]
     Active Substance: TIOTROPIUM BROMIDE MONOHYDRATE
     Indication: Asthma
     Route: 055
  10. ADVAIR HFA [Concomitant]
     Active Substance: FLUTICASONE PROPIONATE\SALMETEROL XINAFOATE
     Indication: Asthma
     Route: 065
  11. PREDNISONE [Concomitant]
     Active Substance: PREDNISONE
     Indication: Asthma
     Route: 048
  12. ZOPICLONE [Concomitant]
     Active Substance: ZOPICLONE
     Indication: Asthma
     Route: 065

REACTIONS (103)
  - Abdominal discomfort [Recovered/Resolved]
  - Abdominal distension [Not Recovered/Not Resolved]
  - Abdominal tenderness [Recovered/Resolved]
  - Addison^s disease [Recovered/Resolved]
  - Adrenal insufficiency [Recovered/Resolved]
  - Anger [Recovered/Resolved]
  - Anxiety [Recovered/Resolved]
  - Arthralgia [Recovered/Resolved]
  - Arthritis infective [Recovered/Resolved]
  - Asthenia [Recovered/Resolved]
  - Asthma [Recovered/Resolved]
  - Bacterial infection [Recovered/Resolved]
  - Blood immunoglobulin E decreased [Recovered/Resolved]
  - Blood immunoglobulin E increased [Recovered/Resolved]
  - Blood test abnormal [Recovered/Resolved]
  - Bronchial wall thickening [Recovered/Resolved]
  - Bronchitis [Recovered/Resolved]
  - Bronchopulmonary dysplasia [Recovered/Resolved]
  - Bundle branch block right [Recovered/Resolved]
  - Burning sensation [Recovered/Resolved]
  - Cardiac disorder [Recovered/Resolved]
  - Carpal tunnel syndrome [Recovered/Resolved]
  - Chest discomfort [Recovered/Resolved]
  - Cognitive disorder [Recovered/Resolved]
  - Communication disorder [Recovered/Resolved]
  - Cough [Recovered/Resolved]
  - Deafness [Recovered/Resolved]
  - Decreased appetite [Recovered/Resolved]
  - Depressed mood [Recovered/Resolved]
  - Depression [Recovered/Resolved]
  - Dermal cyst [Recovered/Resolved]
  - Dermatitis [Recovered/Resolved]
  - Diarrhoea [Recovered/Resolved]
  - Dry skin [Recovered/Resolved]
  - Dyspnoea [Recovered/Resolved]
  - Dyspnoea exertional [Recovered/Resolved]
  - Ear disorder [Recovered/Resolved]
  - Electrocardiogram QRS complex prolonged [Recovered/Resolved]
  - Excessive masturbation [Recovered/Resolved]
  - Fatigue [Recovered/Resolved]
  - Groin pain [Recovered/Resolved]
  - Haemoglobin increased [Recovered/Resolved]
  - Haemorrhage [Recovered/Resolved]
  - Headache [Recovered/Resolved]
  - Hepatosplenomegaly [Recovered/Resolved]
  - Hypertension [Recovered/Resolved]
  - Hypoaesthesia [Recovered/Resolved]
  - Hypoventilation [Recovered/Resolved]
  - Hypoxia [Recovered/Resolved]
  - Impaired work ability [Recovered/Resolved]
  - Infection [Recovered/Resolved]
  - Influenza [Recovered/Resolved]
  - Intervertebral disc degeneration [Recovered/Resolved]
  - Intervertebral disc protrusion [Recovered/Resolved]
  - Joint effusion [Recovered/Resolved]
  - Kyphosis [Recovered/Resolved]
  - Ligament injury [Recovered/Resolved]
  - Loss of personal independence in daily activities [Recovered/Resolved]
  - Lung hyperinflation [Recovered/Resolved]
  - Malaise [Recovered/Resolved]
  - Mass [Recovered/Resolved]
  - Meniscus injury [Recovered/Resolved]
  - Motor dysfunction [Recovered/Resolved]
  - Myelopathy [Recovered/Resolved]
  - Nasal congestion [Recovered/Resolved]
  - Nasal mucosal discolouration [Recovered/Resolved]
  - Nasopharyngitis [Recovered/Resolved]
  - Obstructive airways disorder [Recovered/Resolved]
  - Oxygen saturation decreased [Recovered/Resolved]
  - Pain [Recovered/Resolved]
  - Pain of skin [Recovered/Resolved]
  - Palpitations [Recovered/Resolved]
  - Paraesthesia [Recovered/Resolved]
  - Pericarditis [Recovered/Resolved]
  - Peripheral swelling [Recovered/Resolved]
  - Pharyngeal erythema [Recovered/Resolved]
  - Pneumonia [Recovered/Resolved]
  - Productive cough [Recovered/Resolved]
  - Pruritus [Recovered/Resolved]
  - Pulmonary function test abnormal [Recovered/Resolved]
  - Pyrexia [Recovered/Resolved]
  - Respiration abnormal [Recovered/Resolved]
  - Restrictive pulmonary disease [Recovered/Resolved]
  - Retching [Recovered/Resolved]
  - Right atrial enlargement [Recovered/Resolved]
  - Scar [Recovered/Resolved]
  - Sinus tachycardia [Recovered/Resolved]
  - Skin mass [Recovered/Resolved]
  - Sleep disorder [Recovered/Resolved]
  - Sleep disorder due to a general medical condition [Recovered/Resolved]
  - Somnolence [Recovered/Resolved]
  - Strabismus [Recovered/Resolved]
  - Suicidal ideation [Recovered/Resolved]
  - Syncope [Recovered/Resolved]
  - Tachypnoea [Recovered/Resolved]
  - Therapeutic product effect incomplete [Recovered/Resolved]
  - Tracheal disorder [Recovered/Resolved]
  - Tremor [Recovered/Resolved]
  - Upper-airway cough syndrome [Recovered/Resolved]
  - Viral disease carrier [Recovered/Resolved]
  - Vomiting [Recovered/Resolved]
  - Weight decreased [Recovered/Resolved]
  - Wheezing [Recovered/Resolved]
